FAERS Safety Report 5198085-0 (Version None)
Quarter: 2007Q1

REPORT INFORMATION
  Report Type: 
  Country: None (occurrence: None)
  Receive Date: 20070104
  Receipt Date: 20061222
  Transmission Date: 20070707
  Serious: Yes (Hospitalization, Other)
  Sender: FDA-Public Use
  Company Number: AR-BRISTOL-MYERS SQUIBB COMPANY-13623657

PATIENT
  Age: 68 Year
  Sex: Female

DRUGS (11)
  1. ABATACEPT [Suspect]
     Route: 042
     Dates: start: 20040414
  2. METHOTREXATE [Suspect]
     Indication: RHEUMATOID ARTHRITIS
     Route: 048
     Dates: start: 20021206
  3. FOLIC ACID [Concomitant]
     Dates: start: 19951106
  4. ASPIRIN [Concomitant]
     Dates: start: 19990101
  5. CALCIUM [Concomitant]
     Dates: start: 19980320
  6. ALENDRONATE SODIUM [Concomitant]
     Dates: start: 20021206
  7. CELECOXIB [Concomitant]
     Dates: start: 20051206
  8. FLUOXETINE [Concomitant]
     Dates: start: 20060420
  9. PANTOPRAZOLE SODIUM [Concomitant]
     Dates: start: 20060301
  10. LEXOTANIL [Concomitant]
     Dates: start: 19700101
  11. CLOBETASOL PROPIONATE [Concomitant]
     Dates: start: 20060929

REACTIONS (1)
  - ARTHRITIS BACTERIAL [None]
